FAERS Safety Report 8844172 (Version 1)
Quarter: 2012Q4

REPORT INFORMATION
  Report Type: 
  Country: US (occurrence: US)
  Receive Date: 20121016
  Receipt Date: 20121016
  Transmission Date: 20130627
  Serious: Yes (Hospitalization)
  Sender: FDA-Public Use
  Company Number: US-ASTELLAS-2012US010134

PATIENT
  Age: 81 None
  Sex: Male

DRUGS (1)
  1. PROGRAF [Suspect]
     Indication: HEART TRANSPLANT
     Dosage: 1.5 mg, Unknown/D
     Route: 048
     Dates: start: 20110328

REACTIONS (2)
  - Intestinal obstruction [Recovering/Resolving]
  - Thrombosis [Recovered/Resolved]
